FAERS Safety Report 6971823-X (Version None)
Quarter: 2010Q3

REPORT INFORMATION
  Report Type: 
  Country: None (occurrence: None)
  Receive Date: 20100903
  Receipt Date: 20100817
  Transmission Date: 20110219
  Serious: Yes (Life-Threatening, Hospitalization)
  Sender: FDA-Public Use
  Company Number: AUR-APL-2010-01509

PATIENT
  Age: 46 Year
  Sex: Female

DRUGS (18)
  1. SIMVASTATIN [Suspect]
     Dosage: 40MG, DAILY, 7 YRS-D/C POST CK ELEV
  2. FUSIDIC ACID [Suspect]
     Indication: ARTHRITIS BACTERIAL
     Dosage: 500MG, TID,
  3. MIXTARD HUMAN 70/30 [Concomitant]
  4. FLUCLOXACILLIN 500MG [Concomitant]
  5. GENTAMICIN [Concomitant]
  6. WARFARIN SODIUM [Concomitant]
  7. ASPIRIN [Concomitant]
  8. CLONAZEPAM [Concomitant]
  9. SERTRALINE 50MG [Concomitant]
  10. NICORANDIL 20MG [Concomitant]
  11. ALUCAPS 475MG   CALCIUM [Concomitant]
  12. CALCIUM ACETATE 2G [Concomitant]
  13. IRON SUCROSE 100 MG [Concomitant]
  14. EPOGEN [Concomitant]
  15. ALFACALCIDOL 1?G [Concomitant]
  16. OROVITE [Concomitant]
  17. FOLIC ACID 5MG [Concomitant]
  18. PENICILLIN V 250MG [Concomitant]

REACTIONS (7)
  - ALANINE AMINOTRANSFERASE INCREASED [None]
  - ARTHRITIS BACTERIAL [None]
  - ASPARTATE AMINOTRANSFERASE INCREASED [None]
  - DEMYELINATION [None]
  - NEUROPATHY PERIPHERAL [None]
  - PARAPARESIS [None]
  - RHABDOMYOLYSIS [None]
